FAERS Safety Report 4862944-6 (Version None)
Quarter: 2005Q4

REPORT INFORMATION
  Report Type: 
  Country: None (occurrence: None)
  Receive Date: 20051219
  Receipt Date: 20051206
  Transmission Date: 20060501
  Serious: Yes (Hospitalization)
  Sender: FDA-Public Use
  Company Number: 050154

PATIENT
  Age: 63 Year
  Sex: Male

DRUGS (1)
  1. HALFLYTELY [Suspect]
     Indication: COLONOSCOPY
     Dosage: ABOUT 8 OZ., 1X, PO
     Route: 048

REACTIONS (4)
  - RESPIRATORY ARREST [None]
  - SENSATION OF FOREIGN BODY [None]
  - THROAT TIGHTNESS [None]
  - VOMITING [None]
